FAERS Safety Report 14571681 (Version 5)
Quarter: 2018Q2

REPORT INFORMATION
  Report Type: Spontaneous
  Country: US (occurrence: US)
  Receive Date: 20180226
  Receipt Date: 20180622
  Transmission Date: 20180711
  Serious: Yes (Other)
  Sender: FDA-Public Use
  Company Number: US-PFIZER INC-2018078430

PATIENT
  Age: 37 Year
  Sex: Female
  Weight: 113 kg

DRUGS (8)
  1. LYRICA [Suspect]
     Active Substance: PREGABALIN
     Dosage: 100 MG, 3X/DAY
     Route: 048
  2. LYRICA [Suspect]
     Active Substance: PREGABALIN
     Dosage: UNK (SHE IS ONLY TAKING IT ONE TIME A DAY)
  3. CYMBALTA [Concomitant]
     Active Substance: DULOXETINE HYDROCHLORIDE
  4. LYRICA [Suspect]
     Active Substance: PREGABALIN
     Indication: PAIN
     Dosage: UNK ( 2 TO 3 TIMES A DAY)
  5. LYRICA [Suspect]
     Active Substance: PREGABALIN
     Indication: FIBROMYALGIA
     Dosage: 100 MG, 3X/DAY
     Route: 048
     Dates: start: 2016
  6. BUTRANS [Concomitant]
     Active Substance: BUPRENORPHINE
     Dosage: 10 UG, UNK (PATCH AN HOUR)
     Route: 062
  7. LAMICTAL [Concomitant]
     Active Substance: LAMOTRIGINE
  8. SEROQUEL [Concomitant]
     Active Substance: QUETIAPINE FUMARATE

REACTIONS (10)
  - Chills [Unknown]
  - Somnolence [Unknown]
  - Drug dependence [Unknown]
  - Intentional product use issue [Unknown]
  - Fatigue [Unknown]
  - Drug withdrawal syndrome [Recovered/Resolved]
  - Asthenia [Not Recovered/Not Resolved]
  - Tremor [Unknown]
  - Pain [Not Recovered/Not Resolved]
  - Feeling abnormal [Not Recovered/Not Resolved]

NARRATIVE: CASE EVENT DATE: 20180219
